FAERS Safety Report 13114190 (Version 6)
Quarter: 2017Q3

REPORT INFORMATION
  Report Type: Spontaneous
  Country: US (occurrence: US)
  Receive Date: 20170113
  Receipt Date: 20170822
  Transmission Date: 20171127
  Serious: Yes (Other)
  Sender: FDA-Public Use
  Company Number: US-PFIZER INC-2017012563

PATIENT
  Age: 69 Year
  Sex: Female
  Weight: 63.49 kg

DRUGS (4)
  1. IBRANCE [Suspect]
     Active Substance: PALBOCICLIB
     Dosage: 125 MG, CYCLIC (D 1-21 Q 28 DAYS) (ON HER OFF WEEK)
     Route: 048
  2. IBRANCE [Suspect]
     Active Substance: PALBOCICLIB
     Indication: BREAST CANCER METASTATIC
     Dosage: 125 MG, CYCLIC (D 1-21 Q 28 DAYS) (ON HER OFF WEEK)
     Route: 048
     Dates: start: 20161201
  3. IBRANCE [Suspect]
     Active Substance: PALBOCICLIB
     Dosage: 125 MG, CYCLIC (D 1-21 Q 28 DAYS) (ON HER OFF WEEK)
     Route: 048
  4. IBRANCE [Suspect]
     Active Substance: PALBOCICLIB
     Dosage: 125 MG, CYCLIC (D 1-41 Q 28 DAYS)
     Route: 048
     Dates: start: 20161216

REACTIONS (7)
  - Neutropenia [Unknown]
  - White blood cell count decreased [Recovered/Resolved]
  - Red blood cell count decreased [Recovered/Resolved]
  - Aphthous ulcer [Not Recovered/Not Resolved]
  - Nasopharyngitis [Unknown]
  - Anaemia [Unknown]
  - Ear pain [Unknown]
